FAERS Safety Report 7406829-X (Version None)
Quarter: 2011Q2

REPORT INFORMATION
  Report Type: 
  Country: None (occurrence: None)
  Receive Date: 20110406
  Receipt Date: 20110406
  Transmission Date: 20111010
  Serious: No
  Sender: FDA-Public Use
  Company Number: None

PATIENT
  Sex: Female
  Weight: 49 kg

DRUGS (13)
  1. PEMMEL [Concomitant]
  2. RANITIDINE HCL [Concomitant]
  3. TAXOL [Suspect]
     Dosage: 260 MG
  4. RAMOSTRON [Concomitant]
  5. CARBOPLATIN [Suspect]
     Dosage: 636 MG
  6. CHLORPHENIRAMINE MALEATE [Concomitant]
  7. L-ORNITHINE-L-ASPARTATE [Concomitant]
  8. CIMETIDINE [Concomitant]
  9. METOCLOPRAMIDE HCL [Concomitant]
  10. URSODESOXYCHOLIC ACID [Concomitant]
  11. DEXAMETHASONE [Concomitant]
  12. NORZYME [Concomitant]
  13. ALPRAZOLAM [Concomitant]

REACTIONS (1)
  - URTICARIA [None]
